FAERS Safety Report 10632871 (Version 2)
Quarter: 2014Q4

REPORT INFORMATION
  Report Type: Spontaneous
  Country: US (occurrence: US)
  Receive Date: 20141205
  Receipt Date: 20141205
  Transmission Date: 20150529
  Serious: No
  Sender: FDA-Public Use
  Company Number: US-BRISTOL-MYERS SQUIBB COMPANY-21343629

PATIENT
  Age: 55 Year
  Sex: Female
  Weight: 180 kg

DRUGS (1)
  1. ABATACEPT SUBQ INJECTION 125MG/ML [Suspect]
     Active Substance: ABATACEPT
     Indication: RHEUMATOID ARTHRITIS
     Dosage: LAST INJECTION WAS ON 23AUG2014,14SEP14
     Route: 058

REACTIONS (2)
  - Product quality issue [Unknown]
  - Back pain [Unknown]
